FAERS Safety Report 8303996-0 (Version None)
Quarter: 2012Q2

REPORT INFORMATION
  Report Type: 
  Country: None (occurrence: None)
  Receive Date: 20120423
  Receipt Date: 20120419
  Transmission Date: 20120825
  Serious: Yes (Hospitalization)
  Sender: FDA-Public Use
  Company Number: US-PFIZER INC-2012092178

PATIENT
  Sex: Male
  Weight: 99.7 kg

DRUGS (3)
  1. PAXIL [Concomitant]
     Indication: DEPRESSION
     Dosage: UNK
  2. PRAVASTATIN [Concomitant]
     Indication: BLOOD CHOLESTEROL INCREASED
     Dosage: UNK
  3. PROTONIX [Suspect]
     Indication: DYSPEPSIA
     Dosage: 40 MG, 1X/DAY
     Route: 048

REACTIONS (2)
  - CARDIAC DISORDER [None]
  - HYPERTENSION [None]
